FAERS Safety Report 20564784 (Version 1)
Quarter: 2022Q1

REPORT INFORMATION
  Report Type: Spontaneous
  Country: US (occurrence: US)
  Receive Date: 20220308
  Receipt Date: 20220308
  Transmission Date: 20220423
  Serious: No
  Sender: FDA-Public Use
  Company Number: US-ALLERGAN-2114823US

PATIENT
  Age: 77 Year
  Sex: Female

DRUGS (1)
  1. ESTRACE [Suspect]
     Active Substance: ESTRADIOL
     Indication: Product used for unknown indication
     Dosage: 0.5 G, BI-WEEKLY
     Route: 067

REACTIONS (2)
  - Haematuria [Not Recovered/Not Resolved]
  - Therapy interrupted [Unknown]
